FAERS Safety Report 4606012-7 (Version None)
Quarter: 2005Q1

REPORT INFORMATION
  Report Type: 
  Country: None (occurrence: None)
  Receive Date: 20050303
  Receipt Date: 20041101
  Transmission Date: 20050727
  Serious: No
  Sender: FDA-Public Use
  Company Number: 200420932BWH

PATIENT
  Age: 72 Year
  Sex: Male
  Weight: 88.4514 kg

DRUGS (5)
  1. LEVITRA [Suspect]
     Indication: ERECTILE DYSFUNCTION
     Dosage: 10-20 MG, OW, ORAL
     Route: 048
     Dates: start: 20040701, end: 20040801
  2. LEVITRA [Suspect]
     Indication: ERECTILE DYSFUNCTION
     Dosage: 10-20 MG, OW, ORAL
     Route: 048
     Dates: start: 20040301
  3. LEXAPRO [Concomitant]
  4. WELLBUTRIN SR [Concomitant]
  5. ASPIRIN [Concomitant]

REACTIONS (1)
  - ERECTILE DYSFUNCTION [None]
